FAERS Safety Report 21032702 (Version 2)
Quarter: 2022Q3

REPORT INFORMATION
  Report Type: Spontaneous
  Country: US (occurrence: US)
  Receive Date: 20220701
  Receipt Date: 20220725
  Transmission Date: 20221027
  Serious: No
  Sender: FDA-Public Use
  Company Number: US-BRISTOL-MYERS SQUIBB COMPANY-2022-066280

PATIENT
  Age: 48 Year
  Sex: Female
  Weight: 124.73 kg

DRUGS (1)
  1. REVLIMID [Suspect]
     Active Substance: LENALIDOMIDE
     Indication: Plasma cell myeloma
     Dosage: FREQUENCY-  DAILY DAYS 1-21 EVERY 28 DAYS
     Route: 048
     Dates: start: 20220621

REACTIONS (4)
  - Diarrhoea [Unknown]
  - Peripheral swelling [Recovered/Resolved]
  - Product administration error [Unknown]
  - Skin disorder [Recovered/Resolved]

NARRATIVE: CASE EVENT DATE: 20220621
